FAERS Safety Report 6015194-4 (Version None)
Quarter: 2008Q4

REPORT INFORMATION
  Report Type: 
  Country: None (occurrence: None)
  Receive Date: 20081219
  Receipt Date: 20081219
  Transmission Date: 20090506
  Serious: Yes (Hospitalization)
  Sender: FDA-Public Use
  Company Number: None

PATIENT
  Age: 57 Year
  Sex: Male

DRUGS (1)
  1. VARENICLINE [Suspect]
     Indication: SMOKING CESSATION THERAPY
     Dosage: 1 TAB BID PO
     Route: 048
     Dates: start: 20071107, end: 20071126

REACTIONS (5)
  - ABDOMINAL PAIN [None]
  - DERMATITIS CONTACT [None]
  - RASH ERYTHEMATOUS [None]
  - RASH PRURITIC [None]
  - SPLENIC INFARCTION [None]
